FAERS Safety Report 8495825-X (Version None)
Quarter: 2012Q3

REPORT INFORMATION
  Report Type: 
  Country: None (occurrence: None)
  Receive Date: 20120709
  Receipt Date: 20120628
  Transmission Date: 20120928
  Serious: Yes (Other)
  Sender: FDA-Public Use
  Company Number: JP-VERTEX PHARMACEUTICALS INC.-AE-2011-005671

PATIENT
  Age: 58 Year
  Sex: Male

DRUGS (8)
  1. PEGINTERFERON ALFA-2B [Concomitant]
     Indication: HEPATITIS C
     Route: 058
     Dates: start: 20111221, end: 20120531
  2. LENDORMIN D [Concomitant]
     Route: 048
  3. DORAL [Concomitant]
     Route: 048
     Dates: start: 20120223
  4. RIBAVIRIN [Concomitant]
     Indication: HEPATITIS C
     Route: 048
     Dates: start: 20111221, end: 20120126
  5. TELAVIC (TELAPREVIR) [Suspect]
     Indication: HEPATITIS C
     Route: 048
     Dates: start: 20111221, end: 20120314
  6. RIBAVIRIN [Concomitant]
     Route: 048
     Dates: start: 20120127, end: 20120208
  7. RIBAVIRIN [Concomitant]
     Route: 048
     Dates: start: 20120426, end: 20120606
  8. RIBAVIRIN [Concomitant]
     Route: 048
     Dates: start: 20120209, end: 20120425

REACTIONS (4)
  - ANAEMIA [None]
  - HYPERURICAEMIA [None]
  - ERYTHEMA [None]
  - PYREXIA [None]
